FAERS Safety Report 12873423 (Version 1)
Quarter: 2016Q4

REPORT INFORMATION
  Report Type: Spontaneous
  Country: US (occurrence: US)
  Receive Date: 20161021
  Receipt Date: 20161021
  Transmission Date: 20170207
  Serious: Yes (Other)
  Sender: FDA-Public Use
  Company Number: US-SAOL THERAPEUTICS-2016SAO00747

PATIENT
  Age: 66 Year
  Sex: Female

DRUGS (36)
  1. BACLOFEN. [Suspect]
     Active Substance: BACLOFEN
     Indication: BACK PAIN
     Dosage: 120 MG, \DAY
     Dates: start: 20160831
  2. BACLOFEN. [Suspect]
     Active Substance: BACLOFEN
     Indication: MUSCLE SPASMS
     Dosage: 11.27 UNK, UNK
     Dates: start: 20160831
  3. MORPHINE [Suspect]
     Active Substance: MORPHINE
     Dosage: 0.75 MG, UNK
     Dates: start: 20160831
  4. ZOLOFT [Concomitant]
     Active Substance: SERTRALINE HYDROCHLORIDE
  5. MOVANTIK [Concomitant]
     Active Substance: NALOXEGOL OXALATE
  6. BACLOFEN. [Suspect]
     Active Substance: BACLOFEN
     Indication: PAIN
     Dosage: 149.75 ?G, \DAY
     Route: 037
     Dates: start: 20130626
  7. RELISTOR [Concomitant]
     Active Substance: METHYLNALTREXONE BROMIDE
  8. DEMADEX [Concomitant]
     Active Substance: TORSEMIDE
  9. PROVENTIL [Concomitant]
     Active Substance: ALBUTEROL
  10. BACLOFEN. [Suspect]
     Active Substance: BACLOFEN
     Dosage: 161.67 UNK, UNK
     Dates: start: 20160831
  11. OXYCODONE [Concomitant]
     Active Substance: OXYCODONE
  12. POTASSIUM [Concomitant]
     Active Substance: POTASSIUM
  13. FENTANYL. [Concomitant]
     Active Substance: FENTANYL
  14. DURAGESIC [Concomitant]
     Active Substance: FENTANYL
  15. MORPHINE [Suspect]
     Active Substance: MORPHINE
     Dosage: 9.983 ?G, \DAY
     Route: 037
  16. MORPHINE [Suspect]
     Active Substance: MORPHINE
     Dosage: 10.78 MG, UNK
     Dates: start: 20160831
  17. METOPROLOL. [Concomitant]
     Active Substance: METOPROLOL
  18. SYMBICORT [Concomitant]
     Active Substance: BUDESONIDE\FORMOTEROL FUMARATE DIHYDRATE
  19. TRAZODONE [Concomitant]
     Active Substance: TRAZODONE HYDROCHLORIDE
  20. ALLOPURINOL. [Concomitant]
     Active Substance: ALLOPURINOL
  21. BACLOFEN. [Concomitant]
     Active Substance: BACLOFEN
     Route: 048
  22. KLONOPIN [Concomitant]
     Active Substance: CLONAZEPAM
  23. PROZAC [Concomitant]
     Active Substance: FLUOXETINE HYDROCHLORIDE
  24. LIPITOR [Concomitant]
     Active Substance: ATORVASTATIN CALCIUM
  25. COLCHICINE. [Concomitant]
     Active Substance: COLCHICINE
  26. SPIRONOLACTONE. [Concomitant]
     Active Substance: SPIRONOLACTONE
  27. PHENERGAN [Concomitant]
     Active Substance: PROMETHAZINE HYDROCHLORIDE
  28. CYMBALTA [Concomitant]
     Active Substance: DULOXETINE HYDROCHLORIDE
  29. MORPHINE [Suspect]
     Active Substance: MORPHINE
     Dosage: 8 MG, UNK
     Dates: start: 20160831
  30. PLAQUENIL [Concomitant]
     Active Substance: HYDROXYCHLOROQUINE SULFATE
  31. XOPENEX [Concomitant]
     Active Substance: LEVALBUTEROL HYDROCHLORIDE
  32. ADVAIR HFA [Concomitant]
     Active Substance: FLUTICASONE PROPIONATE\SALMETEROL XINAFOATE
  33. NEXIUM [Concomitant]
     Active Substance: ESOMEPRAZOLE MAGNESIUM
  34. METFORMIN [Concomitant]
     Active Substance: METFORMIN HYDROCHLORIDE
  35. LYRICA [Concomitant]
     Active Substance: PREGABALIN
  36. KEPPRA [Concomitant]
     Active Substance: LEVETIRACETAM

REACTIONS (13)
  - Knee arthroplasty [Recovered/Resolved]
  - Back pain [Unknown]
  - Lumbar spinal stenosis [Unknown]
  - Fall [Unknown]
  - Laceration [Unknown]
  - Cellulitis [Unknown]
  - Compression fracture [Unknown]
  - Spinal laminectomy [Unknown]
  - Spondylolisthesis [Unknown]
  - Muscular weakness [Unknown]
  - Spinal disorder [Unknown]
  - Fracture [Unknown]
  - Oedema peripheral [Unknown]

NARRATIVE: CASE EVENT DATE: 20100215
